FAERS Safety Report 7041659-2 (Version None)
Quarter: 2010Q4

REPORT INFORMATION
  Report Type: 
  Country: None (occurrence: None)
  Receive Date: 20101013
  Receipt Date: 20100414
  Transmission Date: 20110411
  Serious: No
  Sender: FDA-Public Use
  Company Number: US-ASTRAZENECA-2010SE16528

PATIENT
  Sex: Male

DRUGS (2)
  1. SYMBICORT [Suspect]
     Dosage: 160 MCG BID
     Route: 055
     Dates: start: 20100323
  2. SPIRIVA [Concomitant]

REACTIONS (3)
  - ABDOMINAL DISCOMFORT [None]
  - DRUG INEFFECTIVE [None]
  - DYSPNOEA [None]
